FAERS Safety Report 6807595-9 (Version None)
Quarter: 2010Q2

REPORT INFORMATION
  Report Type: 
  Country: None (occurrence: None)
  Receive Date: 20100629
  Receipt Date: 20081028
  Transmission Date: 20101027
  Serious: No
  Sender: FDA-Public Use
  Company Number: US-PFIZER INC-2008091111

PATIENT
  Sex: Female
  Weight: 100 kg

DRUGS (7)
  1. TIKOSYN [Suspect]
     Indication: HEART RATE IRREGULAR
     Dates: start: 20080801
  2. TIKOSYN [Suspect]
     Indication: HEART RATE INCREASED
  3. LOPRESSOR [Concomitant]
  4. VASOTEC [Concomitant]
  5. WARFARIN SODIUM [Concomitant]
  6. VITAMIN TAB [Concomitant]
  7. ALL OTHER THERAPEUTIC PRODUCTS [Concomitant]

REACTIONS (1)
  - BLOOD CHOLESTEROL INCREASED [None]
